FAERS Safety Report 6509848-0 (Version None)
Quarter: 2009Q4

REPORT INFORMATION
  Report Type: 
  Country: None (occurrence: None)
  Receive Date: 20091222
  Receipt Date: 20091215
  Transmission Date: 20100525
  Serious: Yes (Other)
  Sender: FDA-Public Use
  Company Number: US-JNJFOC-20091202561

PATIENT
  Age: 61 Year
  Sex: Male
  Weight: 95.26 kg

DRUGS (3)
  1. TYLENOL (CAPLET) [Suspect]
     Indication: ARTHRALGIA
     Route: 048
  2. TYLENOL (CAPLET) [Suspect]
     Indication: ARTHRITIS
     Route: 048
  3. CENTRUM SILVER [Concomitant]

REACTIONS (3)
  - DYSPHAGIA [None]
  - PHARYNGEAL HAEMORRHAGE [None]
  - PRODUCT QUALITY ISSUE [None]
